FAERS Safety Report 9584584 (Version 1)
Quarter: 2013Q4

REPORT INFORMATION
  Report Type: Spontaneous
  Country: US (occurrence: US)
  Receive Date: 20131002
  Receipt Date: 20131002
  Transmission Date: 20140711
  Serious: No
  Sender: FDA-Public Use
  Company Number: US-AMGEN-USASP2013054227

PATIENT
  Age: 20 Year
  Sex: Female

DRUGS (5)
  1. ENBREL [Suspect]
     Indication: PRODUCT USED FOR UNKNOWN INDICATION
     Dosage: 50 MG, QWK
     Route: 058
  2. EXELON                             /01383201/ [Concomitant]
     Dosage: 1.5 MG, UNK
  3. ALLEGRA [Concomitant]
     Dosage: 180 MG, UNK
  4. METOPROLOL [Concomitant]
     Dosage: 25 MG, UNK
  5. ADDERALL [Concomitant]
     Dosage: 15 MG, UNK

REACTIONS (2)
  - Incorrect dose administered [Unknown]
  - Injection site urticaria [Unknown]
